FAERS Safety Report 11709947 (Version 2)
Quarter: 2015Q4

REPORT INFORMATION
  Report Type: Spontaneous
  Country: US (occurrence: US)
  Receive Date: 20151104
  Receipt Date: 20151110
  Transmission Date: 20160304
  Serious: No
  Sender: FDA-Public Use
  Company Number: US-ELI_LILLY_AND_COMPANY-US201104003381

PATIENT
  Sex: Female

DRUGS (1)
  1. FORTEO [Suspect]
     Active Substance: TERIPARATIDE
     Indication: OSTEOPOROSIS
     Dosage: 20 UG, QD
     Route: 065
     Dates: start: 20110406

REACTIONS (10)
  - Bronchitis [Unknown]
  - Injection site warmth [Recovered/Resolved]
  - Injection site pain [Unknown]
  - Pain [Unknown]
  - Influenza [Recovering/Resolving]
  - Vitamin D increased [Unknown]
  - Injection site erythema [Recovered/Resolved]
  - Injection site papule [Recovered/Resolved]
  - Peripheral swelling [Unknown]
  - Injection site macule [Unknown]
